FAERS Safety Report 9015669 (Version 2)
Quarter: 2013Q1

REPORT INFORMATION
  Report Type: Spontaneous
  Country: US (occurrence: US)
  Receive Date: 20130116
  Receipt Date: 20130204
  Transmission Date: 20140127
  Serious: No
  Sender: FDA-Public Use
  Company Number: US-009507513-1212USA009034

PATIENT
  Sex: 0

DRUGS (2)
  1. IMPLANON [Suspect]
     Dosage: 1 DF, UNK
     Route: 058
     Dates: start: 20121217
  2. IMPLANON [Suspect]
     Dosage: 1 DF, UNK
     Route: 058
     Dates: start: 20121217

REACTIONS (4)
  - Product quality issue [Unknown]
  - Device expulsion [Unknown]
  - Device difficult to use [Unknown]
  - No adverse event [Unknown]
